FAERS Safety Report 5831485-1 (Version None)
Quarter: 2008Q3

REPORT INFORMATION
  Report Type: 
  Country: None (occurrence: None)
  Receive Date: 20080801
  Receipt Date: 20080718
  Transmission Date: 20090109
  Serious: Yes (Hospitalization)
  Sender: FDA-Public Use
  Company Number: JP-GENENTECH-265162

PATIENT
  Sex: Female
  Weight: 85.5 kg

DRUGS (4)
  1. BEVACIZUMAB [Suspect]
     Indication: RECTAL CANCER
     Dosage: 5 MG/KG, UNK
     Route: 042
     Dates: start: 20071023, end: 20080318
  2. FLUOROURACIL [Concomitant]
     Indication: RECTAL CANCER
     Dosage: UNK
     Dates: start: 20071023, end: 20080320
  3. ISOVORIN [Concomitant]
     Indication: RECTAL CANCER
     Dosage: UNK
     Dates: start: 20071023, end: 20080319
  4. LOXONIN [Concomitant]
     Indication: DRUG USE FOR UNKNOWN INDICATION
     Dosage: UNK

REACTIONS (1)
  - INTERSTITIAL LUNG DISEASE [None]
